FAERS Safety Report 15193291 (Version 1)
Quarter: 2018Q3

REPORT INFORMATION
  Report Type: Spontaneous
  Country: US (occurrence: US)
  Receive Date: 20180626
  Receipt Date: 20180626
  Transmission Date: 20181010
  Serious: Yes (Disabling)
  Sender: FDA-Public Use
  Company Number: None

PATIENT
  Age: 81 Year
  Sex: Female
  Weight: 65.77 kg

DRUGS (9)
  1. ATENOLOL. [Concomitant]
     Active Substance: ATENOLOL
  2. PEPPERMINT GEL CAPS [Concomitant]
  3. CITRACEL [Concomitant]
  4. RESTASIS [Concomitant]
     Active Substance: CYCLOSPORINE
  5. SYNTHROID [Concomitant]
     Active Substance: LEVOTHYROXINE SODIUM
  6. VITAMIN D [Concomitant]
     Active Substance: CHOLECALCIFEROL
  7. CIPROFLOXACIN HCL [Suspect]
     Active Substance: CIPROFLOXACIN HYDROCHLORIDE
     Dosage: ?          QUANTITY:14 DF DOSAGE FORM;?
     Route: 048
     Dates: start: 20180214, end: 20180220
  8. CARDURA [Concomitant]
     Active Substance: DOXAZOSIN MESYLATE
  9. B?12 SHOT MONTHLY [Concomitant]

REACTIONS (7)
  - Walking aid user [None]
  - Pain in extremity [None]
  - Musculoskeletal pain [None]
  - Carpal tunnel syndrome [None]
  - Gait disturbance [None]
  - Nerve injury [None]
  - Peripheral swelling [None]

NARRATIVE: CASE EVENT DATE: 201802
